FAERS Safety Report 22254213 (Version 1)
Quarter: 2023Q2

REPORT INFORMATION
  Report Type: Spontaneous
  Country: US (occurrence: US)
  Receive Date: 20230426
  Receipt Date: 20230426
  Transmission Date: 20230721
  Serious: No
  Sender: FDA-Public Use
  Company Number: US-NEUROCRINE BIOSCIENCES INC.-2023NBI03254

PATIENT

DRUGS (2)
  1. INGREZZA [Suspect]
     Active Substance: VALBENAZINE
     Indication: Tardive dyskinesia
     Dosage: 40 MILLIGRAM
     Route: 065
  2. RISPERDAL CONSTA [Concomitant]
     Active Substance: RISPERIDONE

REACTIONS (3)
  - Urticaria [Unknown]
  - Rash [Unknown]
  - Tardive dyskinesia [Unknown]
